FAERS Safety Report 7354966-0 (Version None)
Quarter: 2011Q1

REPORT INFORMATION
  Report Type: 
  Country: None (occurrence: None)
  Receive Date: 20110316
  Receipt Date: 20110304
  Transmission Date: 20110831
  Serious: Yes (Hospitalization)
  Sender: FDA-Public Use
  Company Number: JP-SANOFI-AVENTIS-2010SA066119

PATIENT
  Sex: Male
  Weight: 67 kg

DRUGS (33)
  1. SODIUM PICOSULFATE [Concomitant]
  2. SEVEN EP [Concomitant]
     Route: 048
     Dates: start: 20100819, end: 20100821
  3. CEFAZOLIN SODIUM [Concomitant]
     Route: 041
     Dates: start: 20101104, end: 20101111
  4. FLECAINIDE ACETATE [Concomitant]
     Route: 048
     Dates: start: 20101111
  5. AMLODIPINE BESILATE [Concomitant]
     Indication: HYPERTENSION
     Route: 048
     Dates: start: 20090226
  6. HYDROCORTISONE BUTYRATE [Concomitant]
     Indication: DERMATITIS
     Route: 062
     Dates: start: 20100210
  7. LOXOPROFEN SODIUM [Concomitant]
     Route: 048
     Dates: start: 20100819, end: 20100821
  8. FAMOTIDINE [Concomitant]
     Route: 048
     Dates: start: 20101107, end: 20101203
  9. FUROSEMIDE [Concomitant]
     Indication: CARDIAC FAILURE CONGESTIVE
     Route: 048
     Dates: start: 20091119, end: 20101103
  10. FUROSEMIDE [Concomitant]
     Route: 048
     Dates: start: 20101107
  11. TAMBOCOR [Concomitant]
     Indication: ARRHYTHMIA
     Route: 048
     Dates: start: 20101111
  12. ALOSENN [Concomitant]
     Route: 048
     Dates: start: 20101031
  13. BLINDED THERAPY [Suspect]
     Route: 048
     Dates: start: 20091224, end: 20100318
  14. CLOPIDOGREL BISULFATE [Suspect]
     Route: 048
     Dates: start: 20100319, end: 20101029
  15. METFORMIN HYDROCHLORIDE [Concomitant]
     Indication: DIABETES MELLITUS
     Route: 048
     Dates: start: 20090226
  16. EPINASTINE HYDROCHLORIDE [Concomitant]
     Route: 048
     Dates: start: 20100210
  17. FELBINAC [Concomitant]
     Route: 062
     Dates: start: 20100318
  18. OMEPRAL [Concomitant]
     Indication: GASTRIC HAEMORRHAGE
     Dates: start: 20101102
  19. CEFDITOREN PIVOXIL [Concomitant]
     Route: 048
     Dates: start: 20100819, end: 20100821
  20. LOXOPROFEN SODIUM [Concomitant]
  21. MAGNESIUM OXIDE [Concomitant]
     Route: 048
     Dates: start: 20101031
  22. GLIBENCLAMIDE [Concomitant]
     Route: 048
     Dates: start: 20100226
  23. CILOSTAZOL [Concomitant]
     Indication: THROMBOSIS PROPHYLAXIS
     Route: 048
     Dates: start: 20090807, end: 20101029
  24. SPIRONOLACTONE [Concomitant]
     Route: 048
     Dates: start: 20101107
  25. MAGNESIUM OXIDE HEAVY [Concomitant]
     Indication: CONSTIPATION
     Route: 048
     Dates: start: 20100514
  26. HUMALIN [Concomitant]
     Indication: DIABETES MELLITUS
     Route: 058
     Dates: start: 20101102
  27. LAXOBERON [Concomitant]
     Indication: CONSTIPATION
     Dates: start: 20101102
  28. ORA [Concomitant]
     Route: 061
     Dates: start: 20100819, end: 20100819
  29. SODIUM PICOSULFATE [Concomitant]
     Dosage: DOSE:20 UNIT(S)
     Route: 048
     Dates: start: 20101102
  30. ATORVASTATIN [Concomitant]
     Route: 048
     Dates: start: 20090226
  31. FAMOTIDINE [Concomitant]
     Route: 048
     Dates: start: 20100226, end: 20101029
  32. ALOSENN [Concomitant]
     Indication: CONSTIPATION
     Route: 048
     Dates: start: 20090226, end: 20101028
  33. SPIRONOLACTONE [Concomitant]
     Indication: CARDIAC FAILURE CONGESTIVE
     Route: 048
     Dates: start: 20091119, end: 20101103

REACTIONS (3)
  - GASTROINTESTINAL HAEMORRHAGE [None]
  - LARGE INTESTINE CARCINOMA [None]
  - GASTRIC CANCER [None]
